FAERS Safety Report 5530178-8 (Version None)
Quarter: 2007Q4

REPORT INFORMATION
  Report Type: 
  Country: None (occurrence: None)
  Receive Date: 20071127
  Receipt Date: 20071127
  Transmission Date: 20080405
  Serious: Yes (Other)
  Sender: FDA-Public Use
  Company Number: None

PATIENT
  Age: 29 Year
  Sex: Female

DRUGS (2)
  1. HUMAN CHORIONIC GONADOTROPIN [Suspect]
     Indication: FALLOPIAN TUBE DISORDER
     Dosage: 10,000 UNITS
     Dates: start: 20070611
  2. HUMAN CHORIONIC GONADOTROPIN [Suspect]
     Indication: INFERTILITY
     Dosage: 10,000 UNITS
     Dates: start: 20070611

REACTIONS (1)
  - UNEVALUABLE EVENT [None]
